FAERS Safety Report 23725630 (Version 1)
Quarter: 2024Q2

REPORT INFORMATION
  Report Type: Spontaneous
  Country: SI (occurrence: SI)
  Receive Date: 20240410
  Receipt Date: 20240410
  Transmission Date: 20240716
  Serious: Yes (Death, Hospitalization, Other)
  Sender: FDA-Public Use
  Company Number: SI-TAKEDA-2024TUS033115

PATIENT
  Age: 61 Year
  Sex: Male

DRUGS (3)
  1. ALUNBRIG [Suspect]
     Active Substance: BRIGATINIB
     Indication: Product used for unknown indication
     Dosage: 90 MILLIGRAM
     Route: 065
     Dates: start: 202103
  2. ALUNBRIG [Suspect]
     Active Substance: BRIGATINIB
     Dosage: 180 MILLIGRAM
     Route: 065
  3. LORLATINIB [Suspect]
     Active Substance: LORLATINIB
     Indication: Product used for unknown indication
     Dosage: 100 MILLIGRAM
     Route: 065
     Dates: start: 202303

REACTIONS (9)
  - Acute respiratory failure [Fatal]
  - Pulmonary embolism [Fatal]
  - Metastases to lymph nodes [Unknown]
  - Cardiac disorder [Unknown]
  - Metastases to central nervous system [Unknown]
  - Metastases to spine [Unknown]
  - Metastases to pleura [Unknown]
  - Metastases to lung [Unknown]
  - Pleural effusion [Unknown]

NARRATIVE: CASE EVENT DATE: 20210801
